FAERS Safety Report 9305108 (Version 1)
Quarter: 2013Q2

REPORT INFORMATION
  Report Type: Report from Study
  Country: US (occurrence: US)
  Receive Date: 20130523
  Receipt Date: 20130523
  Transmission Date: 20140414
  Serious: Yes (Other)
  Sender: FDA-Public Use
  Company Number: PHEH2013US003640

PATIENT
  Age: 54 Year
  Sex: Female
  Weight: 120 kg

DRUGS (14)
  1. GLEEVEC [Suspect]
     Indication: NEOPLASM MALIGNANT
     Dosage: 300 MG, QD
     Route: 048
     Dates: start: 20111130
  2. ZOFRAN [Concomitant]
     Dosage: UNK UKN, UNK
  3. SIMVASTATIN [Concomitant]
     Dosage: UNK UKN, UNK
  4. AMBIEN [Concomitant]
     Dosage: UNK UKN, UNK
  5. METFORMIN [Concomitant]
     Dosage: UNK UKN, UNK
  6. POTASSIUM [Concomitant]
     Dosage: UNK UKN, UNK
  7. SPIRONOLACTONE [Concomitant]
     Dosage: UNK UKN, UNK
  8. PAROXETINE [Concomitant]
     Dosage: UNK UKN, UNK
  9. NEXUM [Concomitant]
     Dosage: UNK UKN, UNK
  10. GABAPENTIN [Concomitant]
  11. PAXIL [Concomitant]
  12. HYDROCODONE [Concomitant]
  13. LEVOTHYROXINE [Concomitant]
  14. MAGNESIUM OXIDE [Concomitant]

REACTIONS (4)
  - VIIth nerve paralysis [Not Recovered/Not Resolved]
  - Paraesthesia [Not Recovered/Not Resolved]
  - Muscle spasms [Not Recovered/Not Resolved]
  - Headache [Not Recovered/Not Resolved]
